FAERS Safety Report 17410142 (Version 1)
Quarter: 2020Q1

REPORT INFORMATION
  Report Type: Spontaneous
  Country: US (occurrence: US)
  Receive Date: 20200212
  Receipt Date: 20200212
  Transmission Date: 20200409
  Serious: No
  Sender: FDA-Public Use
  Company Number: US-ARRAY-2020-07303

PATIENT

DRUGS (2)
  1. BRAFTOVI [Suspect]
     Active Substance: ENCORAFENIB
     Indication: MALIGNANT MELANOMA
     Dosage: 450 MG, QD
     Route: 048
  2. MEKTOVI [Suspect]
     Active Substance: BINIMETINIB
     Indication: MALIGNANT MELANOMA
     Dosage: 45 MG, BID
     Route: 048

REACTIONS (7)
  - Hypotension [Unknown]
  - Cardiac disorder [Unknown]
  - Chills [Unknown]
  - Arthralgia [Unknown]
  - Ill-defined disorder [Unknown]
  - Dizziness postural [Unknown]
  - Nausea [Unknown]

NARRATIVE: CASE EVENT DATE: 20200131
